FAERS Safety Report 6171008-3 (Version None)
Quarter: 2009Q2

REPORT INFORMATION
  Report Type: 
  Country: None (occurrence: None)
  Receive Date: 20090429
  Receipt Date: 20090422
  Transmission Date: 20091009
  Serious: Yes (Hospitalization)
  Sender: FDA-Public Use
  Company Number: JP-BRISTOL-MYERS SQUIBB COMPANY-14602908

PATIENT
  Age: 52 Year
  Sex: Male
  Weight: 66 kg

DRUGS (5)
  1. ERBITUX [Suspect]
     Indication: RECTAL CANCER
     Dosage: DOSE REDUCED TO 400MG FROM 11MAR2009-ONG.
     Route: 042
     Dates: start: 20090225, end: 20090225
  2. IRINOTECAN HCL [Concomitant]
     Indication: RECTAL CANCER
     Dosage: IV INFUSION.
     Route: 042
     Dates: start: 20090225
  3. VENA [Concomitant]
     Indication: PREMEDICATION
     Dosage: FORM:TABLET
     Route: 048
     Dates: start: 20090225
  4. DECADRON [Concomitant]
     Indication: PREMEDICATION
     Dosage: IV INFUSION.
     Route: 042
     Dates: start: 20090225
  5. KYTRIL [Concomitant]
     Indication: ANTIEMETIC SUPPORTIVE CARE
     Route: 042
     Dates: start: 20090225

REACTIONS (1)
  - EPISTAXIS [None]
